FAERS Safety Report 8622940-X (Version None)
Quarter: 2012Q3

REPORT INFORMATION
  Report Type: 
  Country: None (occurrence: None)
  Receive Date: 20120827
  Receipt Date: 20120821
  Transmission Date: 20120928
  Serious: No
  Sender: FDA-Public Use
  Company Number: PHEH2012US016616

PATIENT
  Sex: Female
  Weight: 159 kg

DRUGS (13)
  1. TASIGNA [Suspect]
     Dosage: 150 MG, BID
     Route: 048
  2. GLIPIZIDE [Concomitant]
     Dosage: 5 MG, UNK
  3. FISH OIL [Concomitant]
  4. NABUMETONE [Concomitant]
     Dosage: 500 MG, UNK
  5. IMODIUM A-D [Concomitant]
     Dosage: 2 MG, UNK
  6. DILTIAZEM [Concomitant]
     Dosage: 120 MG, UNK
  7. PEPCID AC [Concomitant]
     Dosage: 10 MG, UNK
  8. FOSINOPRIL SODIUM [Concomitant]
     Dosage: 20 MG, UNK
  9. FENOFIBRATE [Concomitant]
     Dosage: 134 MG, UNK
  10. ARIMIDEX [Concomitant]
     Dosage: 1 MG, UNK
  11. MULTI-VITAMINS [Concomitant]
  12. METHOTREXATE [Concomitant]
     Dosage: 2.5 MG, UNK
  13. ASPIRIN [Concomitant]
     Dosage: 81 MG, UNK

REACTIONS (4)
  - DYSPEPSIA [None]
  - DIARRHOEA [None]
  - VOMITING [None]
  - BLOOD GLUCOSE INCREASED [None]
